FAERS Safety Report 5018005-9 (Version None)
Quarter: 2006Q2

REPORT INFORMATION
  Report Type: 
  Country: None (occurrence: None)
  Receive Date: 20060605
  Receipt Date: 20060526
  Transmission Date: 20061013
  Serious: Yes (Death, Other)
  Sender: FDA-Public Use
  Company Number: JP-BRACCO-BRO-010177

PATIENT
  Sex: Female
  Weight: 33.5 kg

DRUGS (9)
  1. IOPAMIRON [Suspect]
     Indication: GASTRIC CANCER
     Route: 042
     Dates: start: 20060518, end: 20060518
  2. IOPAMIRON [Suspect]
     Route: 042
     Dates: start: 20060518, end: 20060518
  3. LANIRAPID [Concomitant]
     Route: 050
  4. OLMETEC [Concomitant]
     Route: 050
  5. TAKEPRON [Concomitant]
     Route: 050
  6. MUCOSTA [Concomitant]
     Route: 050
  7. LENDORMIN [Concomitant]
     Route: 050
  8. KARY UNI [Concomitant]
     Route: 050
  9. MAGNESIUM OXIDE [Concomitant]
     Route: 050

REACTIONS (10)
  - BLOOD PRESSURE IMMEASURABLE [None]
  - CONTRAST MEDIA REACTION [None]
  - CONVULSION [None]
  - FEELING ABNORMAL [None]
  - HYPERSENSITIVITY [None]
  - LOSS OF CONSCIOUSNESS [None]
  - PULSE PRESSURE DECREASED [None]
  - RESPIRATORY ARREST [None]
  - SHOCK [None]
  - VENTRICULAR TACHYCARDIA [None]
